FAERS Safety Report 7668443-0 (Version None)
Quarter: 2011Q3

REPORT INFORMATION
  Report Type: 
  Country: None (occurrence: None)
  Receive Date: 20110808
  Receipt Date: 20110628
  Transmission Date: 20111222
  Serious: No
  Sender: FDA-Public Use
  Company Number: US-GLAXOSMITHKLINE-A0933441A

PATIENT
  Sex: Female

DRUGS (2)
  1. METRONIDAZOLE [Concomitant]
  2. VELTIN [Suspect]
     Indication: PRODUCT USED FOR UNKNOWN INDICATION
     Route: 061

REACTIONS (2)
  - ERYTHEMA [None]
  - ADVERSE EVENT [None]
